FAERS Safety Report 24301751 (Version 1)
Quarter: 2024Q3

REPORT INFORMATION
  Report Type: Spontaneous
  Country: HR (occurrence: HR)
  Receive Date: 20240910
  Receipt Date: 20240910
  Transmission Date: 20241016
  Serious: Yes (Death, Hospitalization)
  Sender: ASTELLAS
  Company Number: HR-ASTELLAS-2024-AER-005307

PATIENT
  Sex: Male

DRUGS (2)
  1. PADCEV [Suspect]
     Active Substance: ENFORTUMAB VEDOTIN-EJFV
     Indication: Product used for unknown indication
     Route: 065
  2. PADCEV [Suspect]
     Active Substance: ENFORTUMAB VEDOTIN-EJFV
     Route: 065
     Dates: start: 20240716

REACTIONS (7)
  - Respiratory failure [Fatal]
  - Sepsis [Fatal]
  - Pancytopenia [Fatal]
  - Pneumonia [Fatal]
  - Urinary tract infection enterococcal [Unknown]
  - Febrile neutropenia [Unknown]
  - Hypertension [Unknown]

NARRATIVE: CASE EVENT DATE: 20240701
